FAERS Safety Report 12809238 (Version 1)
Quarter: 2016Q4

REPORT INFORMATION
  Report Type: Report from Study
  Country: US (occurrence: US)
  Receive Date: 20161004
  Receipt Date: 20161004
  Transmission Date: 20170207
  Serious: Yes (Other)
  Sender: FDA-Public Use
  Company Number: US-AMGEN-USASL2016134052

PATIENT
  Age: 70 Year
  Sex: Female

DRUGS (1)
  1. ENBREL [Suspect]
     Active Substance: ETANERCEPT
     Indication: RHEUMATOID ARTHRITIS
     Dosage: 50 MG, Q2WK
     Route: 065
     Dates: start: 200803

REACTIONS (6)
  - Breast atrophy [Unknown]
  - Breast cancer [Unknown]
  - Off label use [Unknown]
  - Breast abscess [Unknown]
  - Breast induration [Unknown]
  - Breast calcifications [Unknown]

NARRATIVE: CASE EVENT DATE: 2008
